FAERS Safety Report 23364293 (Version 1)
Quarter: 2024Q1

REPORT INFORMATION
  Report Type: Other
  Country: US (occurrence: None)
  Receive Date: 20240104
  Receipt Date: 20240104
  Transmission Date: 20240410
  Serious: Yes (Death)
  Sender: FDA-Public Use
  Company Number: US-ROCHE-3484307

PATIENT
  Age: 82 Year
  Sex: Female

DRUGS (9)
  1. RITUXIMAB [Suspect]
     Active Substance: RITUXIMAB
     Indication: Interstitial lung disease
     Route: 041
  2. METHYLPREDNISOLONE [Suspect]
     Active Substance: METHYLPREDNISOLONE
     Indication: Interstitial lung disease
     Route: 065
  3. CYCLOPHOSPHAMIDE [Suspect]
     Active Substance: CYCLOPHOSPHAMIDE
     Indication: Interstitial lung disease
     Route: 065
  4. PREDNISONE [Suspect]
     Active Substance: PREDNISONE
     Indication: Interstitial lung disease
     Route: 065
  5. VANCOMYCIN [Concomitant]
     Active Substance: VANCOMYCIN
  6. PIPERACILLIN [Concomitant]
     Active Substance: PIPERACILLIN
  7. TAZOBACTAM [Concomitant]
     Active Substance: TAZOBACTAM
  8. DOXYCYCLINE [Concomitant]
     Active Substance: DOXYCYCLINE
  9. CIDOFOVIR [Concomitant]
     Active Substance: CIDOFOVIR

REACTIONS (2)
  - Adenovirus infection [Fatal]
  - Multiple organ dysfunction syndrome [Fatal]
